FAERS Safety Report 8995063 (Version 1)
Quarter: 2012Q4

REPORT INFORMATION
  Report Type: Spontaneous
  Country: US (occurrence: None)
  Receive Date: 20121228
  Receipt Date: 20121228
  Transmission Date: 20130627
  Serious: Yes (Hospitalization)
  Sender: FDA-Public Use
  Company Number: None

PATIENT
  Age: 82 Year
  Sex: Male
  Weight: 77.2 kg

DRUGS (1)
  1. VANCOMYCIN [Suspect]
     Dosage: 1250 MG BID IV
     Route: 042
     Dates: start: 20121121, end: 20121125

REACTIONS (1)
  - Renal failure acute [None]
